FAERS Safety Report 5639616-3 (Version None)
Quarter: 2008Q1

REPORT INFORMATION
  Report Type: 
  Country: None (occurrence: None)
  Receive Date: 20080226
  Receipt Date: 20080215
  Transmission Date: 20080703
  Serious: Yes (Other)
  Sender: FDA-Public Use
  Company Number: CA-ALLERGAN-0801774US

PATIENT
  Sex: Female

DRUGS (1)
  1. COMBIGAN [Suspect]
     Indication: DRUG USE FOR UNKNOWN INDICATION
     Dosage: GTT, BID
     Dates: start: 20071218, end: 20070214

REACTIONS (6)
  - ASTHENIA [None]
  - DIZZINESS [None]
  - DRY MOUTH [None]
  - IRITIS [None]
  - PALPITATIONS [None]
  - THROAT TIGHTNESS [None]
